FAERS Safety Report 17533452 (Version 1)
Quarter: 2020Q1

REPORT INFORMATION
  Report Type: Spontaneous
  Country: FR (occurrence: FR)
  Receive Date: 20200312
  Receipt Date: 20200312
  Transmission Date: 20200409
  Serious: Yes (Other)
  Sender: FDA-Public Use
  Company Number: FR-PFIZER INC-2020103736

PATIENT
  Age: 38 Year
  Sex: Female
  Weight: 58 kg

DRUGS (3)
  1. ZOLOFT [Suspect]
     Active Substance: SERTRALINE HYDROCHLORIDE
     Indication: DEPRESSION
     Dosage: 100 MG, 1X/DAY
     Route: 048
     Dates: start: 201812
  2. WAKIX [Suspect]
     Active Substance: PITOLISANT HYDROCHLORIDE
     Indication: HYPERSOMNIA
     Dosage: 13.5 MG, 1X/DAY
     Route: 048
     Dates: start: 201910, end: 201911
  3. RITALINE [Suspect]
     Active Substance: METHYLPHENIDATE HYDROCHLORIDE
     Indication: ATTENTION DEFICIT/HYPERACTIVITY DISORDER
     Dosage: 30 MG, 1X/DAY
     Route: 048
     Dates: start: 20180606, end: 20200127

REACTIONS (2)
  - Nightmare [Recovered/Resolved]
  - Poor quality sleep [Recovered/Resolved]

NARRATIVE: CASE EVENT DATE: 201910
